FAERS Safety Report 16375483 (Version 3)
Quarter: 2019Q3

REPORT INFORMATION
  Report Type: Other
  Country: CA (occurrence: CA)
  Receive Date: 20190531
  Receipt Date: 20190814
  Transmission Date: 20191004
  Serious: Yes (Other)
  Sender: FDA-Public Use
  Company Number: CA-APOTEX-2019AP015020

PATIENT
  Age: 62 Year
  Sex: Female
  Weight: 59 kg

DRUGS (4)
  1. SYMBICORT [Suspect]
     Active Substance: BUDESONIDE\FORMOTEROL FUMARATE DIHYDRATE
     Indication: PRODUCT USED FOR UNKNOWN INDICATION
     Dosage: 2 DF, TID
     Route: 065
  2. SINGULAIR [Suspect]
     Active Substance: MONTELUKAST SODIUM
     Indication: PRODUCT USED FOR UNKNOWN INDICATION
     Dosage: 10 MG, UNK
     Route: 065
  3. PULMICORT TURBUHALER [Suspect]
     Active Substance: BUDESONIDE
     Indication: PRODUCT USED FOR UNKNOWN INDICATION
     Dosage: UNK, INHALTION ROUTE
     Route: 065
  4. SALBUTAMOL [Suspect]
     Active Substance: ALBUTEROL
     Indication: PRODUCT USED FOR UNKNOWN INDICATION
     Route: 065

REACTIONS (18)
  - Blood count abnormal [Recovering/Resolving]
  - Eosinophilia [Recovering/Resolving]
  - Bronchiectasis [Recovering/Resolving]
  - Cough [Recovering/Resolving]
  - Deafness [Recovering/Resolving]
  - Productive cough [Recovering/Resolving]
  - Malaise [Recovering/Resolving]
  - Eosinophilic granulomatosis with polyangiitis [Recovering/Resolving]
  - Obstructive airways disorder [Recovering/Resolving]
  - Pulmonary mass [Recovering/Resolving]
  - Bronchopulmonary aspergillosis allergic [Recovering/Resolving]
  - Therapeutic product effect incomplete [Recovering/Resolving]
  - Wheezing [Recovering/Resolving]
  - Sputum discoloured [Recovering/Resolving]
  - Dyspnoea exertional [Recovering/Resolving]
  - Haemoptysis [Recovering/Resolving]
  - Staphylococcal infection [Recovering/Resolving]
  - Chest pain [Recovering/Resolving]
